FAERS Safety Report 15476623 (Version 5)
Quarter: 2019Q1

REPORT INFORMATION
  Report Type: Report from Study
  Country: None (occurrence: US)
  Receive Date: 20181009
  Receipt Date: 20190121
  Transmission Date: 20190417
  Serious: Yes (Hospitalization, Other)
  Sender: FDA-Public Use
  Company Number: US-ABBVIE-18K-163-2511647-00

PATIENT
  Age: 54 Year
  Sex: Female

DRUGS (2)
  1. HUMIRA [Suspect]
     Active Substance: ADALIMUMAB
     Indication: CROHN^S DISEASE
     Route: 058
     Dates: start: 20180925, end: 2018
  2. HUMIRA [Suspect]
     Active Substance: ADALIMUMAB
     Indication: RHEUMATOID ARTHRITIS
     Route: 058
     Dates: start: 2018

REACTIONS (16)
  - Drug effect variable [Unknown]
  - Anaesthetic complication neurological [Not Recovered/Not Resolved]
  - Ileostomy [Unknown]
  - Fatigue [Not Recovered/Not Resolved]
  - Device issue [Unknown]
  - Fistula [Unknown]
  - Joint swelling [Recovering/Resolving]
  - Arthralgia [Recovering/Resolving]
  - Dysarthria [Not Recovered/Not Resolved]
  - Hernia [Unknown]
  - Joint stiffness [Recovering/Resolving]
  - Stoma site abscess [Recovering/Resolving]
  - Abdominal wall wound [Recovered/Resolved]
  - Gait disturbance [Recovering/Resolving]
  - Pain [Not Recovered/Not Resolved]
  - Abdominal pain upper [Recovered/Resolved]

NARRATIVE: CASE EVENT DATE: 2018
